FAERS Safety Report 5699936-3 (Version None)
Quarter: 2008Q2

REPORT INFORMATION
  Report Type: 
  Country: None (occurrence: None)
  Receive Date: 20080410
  Receipt Date: 20080403
  Transmission Date: 20081010
  Serious: Yes (Life-Threatening, Hospitalization)
  Sender: FDA-Public Use
  Company Number: FR-AVENTIS-200811213FR

PATIENT
  Age: 44 Year
  Sex: Male

DRUGS (14)
  1. OFLOCET                            /00731801/ [Suspect]
     Indication: SKIN ULCER
     Route: 048
     Dates: start: 20071204, end: 20080124
  2. LOVENOX [Suspect]
     Indication: DEEP VEIN THROMBOSIS
     Route: 058
     Dates: start: 20071212, end: 20080122
  3. BACTRIM [Suspect]
     Indication: SKIN ULCER
     Route: 048
     Dates: start: 20071212, end: 20080124
  4. NEXIUM [Suspect]
     Route: 048
     Dates: start: 20080105, end: 20080128
  5. PREVISCAN                          /00789001/ [Suspect]
     Indication: THROMBOSIS
     Route: 048
     Dates: start: 20080105, end: 20080124
  6. PARACETAMOL [Concomitant]
     Indication: PAIN
     Route: 048
  7. EQUANIL [Concomitant]
     Route: 048
  8. LEPTICUR [Concomitant]
     Route: 048
  9. TERCIAN                            /00759301/ [Concomitant]
     Route: 048
  10. ZOPICLONE [Concomitant]
     Indication: INSOMNIA
     Route: 048
  11. DAFLON                             /00426001/ [Concomitant]
     Route: 048
  12. AIROMIR [Concomitant]
     Indication: RESPIRATORY DISORDER
     Route: 055
  13. QVAR 40 [Concomitant]
     Indication: RESPIRATORY DISORDER
     Route: 055
  14. FLUANXOL [Concomitant]
     Route: 030

REACTIONS (9)
  - AZOTAEMIA [None]
  - C-REACTIVE PROTEIN INCREASED [None]
  - DRUG RASH WITH EOSINOPHILIA AND SYSTEMIC SYMPTOMS [None]
  - EOSINOPHILIA [None]
  - HEPATIC ENZYME INCREASED [None]
  - HYPERKALAEMIA [None]
  - LEUKOCYTOSIS [None]
  - LYMPHOCYTOSIS [None]
  - TOXIC SKIN ERUPTION [None]
